FAERS Safety Report 5115696-9 (Version None)
Quarter: 2006Q3

REPORT INFORMATION
  Report Type: 
  Country: None (occurrence: None)
  Receive Date: 20060926
  Receipt Date: 20060926
  Transmission Date: 20061208
  Serious: Yes (Other)
  Sender: FDA-Public Use
  Company Number: None

PATIENT
  Age: 34 Year
  Sex: Female

DRUGS (6)
  1. GEODON [Suspect]
     Indication: BIPOLAR DISORDER
     Dosage: 160 MG/DAY DIVIDED DOSE PO
     Route: 048
     Dates: start: 20040101, end: 20060901
  2. GEODON [Suspect]
     Indication: CONVULSION
     Dosage: 160 MG/DAY DIVIDED DOSE PO
     Route: 048
     Dates: start: 20040101, end: 20060901
  3. DEPAKOTE [Suspect]
     Indication: BIPOLAR DISORDER
     Dosage: 1125-1675 MG/DAY BID PO
     Route: 048
     Dates: start: 19950101
  4. DEPAKOTE [Suspect]
     Indication: CONVULSION
     Dosage: 1125-1675 MG/DAY BID PO
     Route: 048
     Dates: start: 19950101
  5. VALIUM [Concomitant]
  6. COGENTIN [Concomitant]

REACTIONS (4)
  - HYSTERECTOMY [None]
  - OOPHORECTOMY [None]
  - POST PROCEDURAL COMPLICATION [None]
  - STUPOR [None]
